FAERS Safety Report 5587036-2 (Version None)
Quarter: 2008Q1

REPORT INFORMATION
  Report Type: 
  Country: None (occurrence: None)
  Receive Date: 20080110
  Receipt Date: 20080103
  Transmission Date: 20080703
  Serious: Yes (Other)
  Sender: FDA-Public Use
  Company Number: B0359814A

PATIENT
  Age: 18 Year
  Sex: Female

DRUGS (1)
  1. SEROXAT [Suspect]
     Route: 065
     Dates: start: 20010420

REACTIONS (10)
  - ABDOMINAL PAIN UPPER [None]
  - AGGRESSION [None]
  - AMNESIA [None]
  - ANOREXIA [None]
  - DISTURBANCE IN ATTENTION [None]
  - DRUG WITHDRAWAL SYNDROME [None]
  - INSOMNIA [None]
  - INTENTIONAL SELF-INJURY [None]
  - MANIA [None]
  - VISION BLURRED [None]
